FAERS Safety Report 6994396-4 (Version None)
Quarter: 2010Q3

REPORT INFORMATION
  Report Type: 
  Country: None (occurrence: None)
  Receive Date: 20100917
  Receipt Date: 20100909
  Transmission Date: 20110219
  Serious: Yes (Hospitalization)
  Sender: FDA-Public Use
  Company Number: US-AMGEN-KDL437233

PATIENT
  Sex: Female

DRUGS (1)
  1. ENBREL [Suspect]
     Indication: RHEUMATOID ARTHRITIS
     Route: 058
     Dates: start: 20010102

REACTIONS (7)
  - BURSA DISORDER [None]
  - JOINT INJURY [None]
  - PERIPHERAL VASCULAR DISORDER [None]
  - SINUSITIS [None]
  - SKIN INJURY [None]
  - WOUND [None]
  - WOUND INFECTION [None]
